FAERS Safety Report 7591570-3 (Version None)
Quarter: 2011Q3

REPORT INFORMATION
  Report Type: 
  Country: None (occurrence: None)
  Receive Date: 20110706
  Receipt Date: 20090930
  Transmission Date: 20111222
  Serious: Yes (Hospitalization, Other)
  Sender: FDA-Public Use
  Company Number: US-BAYER-200934452NA

PATIENT
  Age: 69 Year
  Sex: Male
  Weight: 102.3 kg

DRUGS (18)
  1. ALLOPURINOL [Concomitant]
     Dosage: 300MG ONCE DAILY AS NECESSARY
     Route: 048
     Dates: end: 20030818
  2. FENTANYL [Concomitant]
     Dosage: UNK
     Route: 042
     Dates: start: 20030819
  3. PROTAMINE SULFATE [Concomitant]
     Dosage: 250 MG
     Route: 042
     Dates: start: 20030819, end: 20030819
  4. TRASYLOL [Suspect]
     Indication: PRODUCT USED FOR UNKNOWN INDICATION
     Dosage: 1 ML, ONCE
     Route: 042
     Dates: start: 20030819, end: 20030819
  5. TRASYLOL [Suspect]
     Dosage: 25ML/HR INFUSION
     Route: 042
     Dates: start: 20030819, end: 20030819
  6. MIDAZOLAM HCL [Concomitant]
     Dosage: UNK
     Route: 042
     Dates: start: 20030819
  7. PHENYLEPHRINE HCL [Concomitant]
     Dosage: 100MCG
     Route: 042
     Dates: start: 20030819
  8. CEFUROXIME [Concomitant]
     Dosage: 1.5 MG
     Route: 042
     Dates: start: 20030819
  9. HEPARIN [Concomitant]
     Dosage: UNK
     Route: 042
     Dates: start: 20030819, end: 20030819
  10. MILRINONE [Concomitant]
     Dosage: UNK
     Route: 042
     Dates: start: 20030819
  11. RED BLOOD CELLS [Concomitant]
     Dosage: 2 U, ONCE
     Route: 042
  12. TRASYLOL [Suspect]
     Dosage: 50ML/HR INFUSION
     Route: 042
     Dates: start: 20030819, end: 20030819
  13. TRASYLOL [Suspect]
     Dosage: 400 ML OF LOADING DOSE
     Route: 042
     Dates: start: 20030819, end: 20030819
  14. ACETYLSALICYLIC ACID SRT [Concomitant]
     Dosage: 81 MG, QD
     Route: 048
     Dates: start: 19950101, end: 20030818
  15. SUCCINYLCHOLINE CHLORIDE [Concomitant]
     Dosage: 200 MG
     Route: 042
     Dates: start: 20030819, end: 20030819
  16. TICLOPIDINE HCL [Concomitant]
     Dosage: 250 MG, BID
     Route: 048
     Dates: start: 20010719, end: 20030818
  17. ENALAPRIL MALEATE [Concomitant]
     Dosage: 20 MG, BID
     Route: 048
     Dates: start: 19870101, end: 20030818
  18. DILTIAZEM [Concomitant]
     Dosage: 180 MG, QD
     Route: 048
     Dates: start: 19870101, end: 20030818

REACTIONS (10)
  - RENAL FAILURE [None]
  - RENAL INJURY [None]
  - ANXIETY [None]
  - RENAL IMPAIRMENT [None]
  - INJURY [None]
  - STRESS [None]
  - PAIN [None]
  - EMOTIONAL DISTRESS [None]
  - FEAR [None]
  - UNEVALUABLE EVENT [None]
